FAERS Safety Report 8585268-2 (Version None)
Quarter: 2012Q3

REPORT INFORMATION
  Report Type: 
  Country: None (occurrence: None)
  Receive Date: 20120810
  Receipt Date: 20120809
  Transmission Date: 20120928
  Serious: Yes (Death)
  Sender: FDA-Public Use
  Company Number: PHHY2012DE047443

PATIENT
  Sex: Male

DRUGS (8)
  1. IMATINIB MESYLATE [Suspect]
     Indication: GASTROINTESTINAL STROMAL TUMOUR
     Dosage: 400 MG, DAILY
     Route: 048
     Dates: start: 20010603
  2. METOCLOPRAMIDE [Concomitant]
     Dosage: 20 DRP, TID
  3. TENORMIN [Concomitant]
     Dosage: 1 DF, QD
  4. ALLOPURINOL [Concomitant]
     Dosage: 1 DF, QD
  5. XIMOVAN [Concomitant]
     Dosage: UNK UKN,AT NIGHT
  6. DIGOXIN [Concomitant]
     Dosage: 1 DF, QD IN MORNING
  7. TRIAMTERENE AND HYDROCHLOROTHIAZIDE [Concomitant]
     Dosage: UNK UKN, UNK
  8. TILIDINE [Concomitant]
     Dosage: UNK UKN, UNK

REACTIONS (1)
  - COMPLETED SUICIDE [None]
